FAERS Safety Report 24677922 (Version 2)
Quarter: 2025Q2

REPORT INFORMATION
  Report Type: Spontaneous
  Country: US (occurrence: US)
  Receive Date: 20241129
  Receipt Date: 20250424
  Transmission Date: 20250716
  Serious: Yes (Hospitalization)
  Sender: BRISTOL-MYERS SQUIBB COMPANY
  Company Number: US-BRISTOL-MYERS SQUIBB COMPANY-2024-184005

PATIENT
  Age: 46 Year
  Sex: Male

DRUGS (14)
  1. COBENFY [Suspect]
     Active Substance: TROSPIUM CHLORIDE\XANOMELINE
     Indication: Schizophrenia
     Dosage: DOSE: 50MG/20MG
     Dates: start: 20241031, end: 20241111
  2. COBENFY [Suspect]
     Active Substance: TROSPIUM CHLORIDE\XANOMELINE
     Dosage: DOSE: 50MG/20MG
     Dates: start: 20241106, end: 20241111
  3. FAMOTIDINE [Concomitant]
     Active Substance: FAMOTIDINE
  4. MELOXICAM [Concomitant]
     Active Substance: MELOXICAM
  5. COLACE [Concomitant]
     Active Substance: DOCUSATE SODIUM
  6. TOPROL XL [Concomitant]
     Active Substance: METOPROLOL SUCCINATE
  7. PROVIGIL [Concomitant]
     Active Substance: MODAFINIL
  8. XANAX [Concomitant]
     Active Substance: ALPRAZOLAM
  9. OLANZAPINE [Concomitant]
     Active Substance: OLANZAPINE
  10. GABAPENTIN [Concomitant]
     Active Substance: GABAPENTIN
  11. ARISTADA [Concomitant]
     Active Substance: ARIPIPRAZOLE LAUROXIL
  12. TOPAMAX [Concomitant]
     Active Substance: TOPIRAMATE
  13. PROZAC [Concomitant]
     Active Substance: FLUOXETINE HYDROCHLORIDE
  14. SUBOXONE [Concomitant]
     Active Substance: BUPRENORPHINE HYDROCHLORIDE\NALOXONE HYDROCHLORIDE

REACTIONS (5)
  - Nausea [Unknown]
  - Treatment noncompliance [Unknown]
  - Visual impairment [Recovered/Resolved]
  - Headache [Recovered/Resolved]
  - Abdominal discomfort [Recovered/Resolved]

NARRATIVE: CASE EVENT DATE: 20241031
